FAERS Safety Report 12459059 (Version 1)
Quarter: 2016Q2

REPORT INFORMATION
  Report Type: Report from Study
  Country: IT (occurrence: IT)
  Receive Date: 20160613
  Receipt Date: 20160613
  Transmission Date: 20160815
  Serious: Yes (Hospitalization)
  Sender: FDA-Public Use
  Company Number: IT-AUROBINDO-AUR-APL-2016-07582

PATIENT
  Age: 82 Year
  Sex: Female

DRUGS (4)
  1. METHYLENE BLUE. [Suspect]
     Active Substance: METHYLENE BLUE
     Indication: VASOPLEGIA SYNDROME
     Dosage: 100 MG, UNK
     Route: 065
  2. CITALOPRAM [Suspect]
     Active Substance: CITALOPRAM HYDROBROMIDE
     Indication: ANTIDEPRESSANT THERAPY
     Dosage: 20 MG, DAILY
     Route: 065
  3. FENTANYL. [Interacting]
     Active Substance: FENTANYL
     Indication: ANAESTHESIA
     Dosage: 300 ?G, UNK
     Route: 065
  4. FENTANYL. [Interacting]
     Active Substance: FENTANYL
     Dosage: 400 ?G, UNK
     Route: 065

REACTIONS (6)
  - Nystagmus [Recovered/Resolved]
  - Serotonin syndrome [Recovered/Resolved]
  - Toxicity to various agents [Recovered/Resolved]
  - Hyperhidrosis [Recovered/Resolved]
  - Drug interaction [Recovered/Resolved]
  - Coma [Recovered/Resolved]
